FAERS Safety Report 19008127 (Version 1)
Quarter: 2021Q1

REPORT INFORMATION
  Report Type: Spontaneous
  Country: ES (occurrence: ES)
  Receive Date: 20210316
  Receipt Date: 20210316
  Transmission Date: 20210420
  Serious: Yes (Hospitalization)
  Sender: FDA-Public Use
  Company Number: ES-JNJFOC-20210320152

PATIENT
  Age: 30 Year
  Sex: Male

DRUGS (4)
  1. DIPOTASSIUM CHLORAZEPATE [Suspect]
     Active Substance: CLORAZEPATE DIPOTASSIUM
     Indication: PSYCHOTHERAPY
     Dosage: 45 MILLIGRAM DAILY
     Route: 065
  2. BIPERIDEN [Concomitant]
     Active Substance: BIPERIDEN
     Indication: PRODUCT USED FOR UNKNOWN INDICATION
     Route: 065
  3. HALOPERIDOL. [Suspect]
     Active Substance: HALOPERIDOL
     Indication: PSYCHOTHERAPY
     Dosage: 10 MILLIGRAM DAILY
     Route: 065
  4. AMISULPRIDE [Suspect]
     Active Substance: AMISULPRIDE
     Indication: PSYCHOTHERAPY
     Dosage: 600 MILLIGRAM DAILY
     Route: 065

REACTIONS (1)
  - Porphyria [Recovered/Resolved]
